FAERS Safety Report 14091903 (Version 26)
Quarter: 2021Q1

REPORT INFORMATION
  Report Type: Report from Study
  Country: AR (occurrence: AR)
  Receive Date: 20171016
  Receipt Date: 20210329
  Transmission Date: 20210419
  Serious: Yes (Hospitalization, Other)
  Sender: FDA-Public Use
  Company Number: PHHY2017AR151832

PATIENT
  Age: 44 Year
  Sex: Male

DRUGS (8)
  1. COSENTYX [Suspect]
     Active Substance: SECUKINUMAB
     Indication: PSORIASIS
     Dosage: 300 MG, QMO
     Route: 058
     Dates: start: 20170705
  2. COSENTYX [Suspect]
     Active Substance: SECUKINUMAB
     Dosage: 300 MG, QMO
     Route: 058
     Dates: start: 20200530
  3. CARVEDILOL. [Concomitant]
     Active Substance: CARVEDILOL
     Indication: PORTAL HYPERTENSION
     Dosage: UNK
     Route: 065
  4. METHOTREXATE. [Suspect]
     Active Substance: METHOTREXATE
     Indication: PRODUCT USED FOR UNKNOWN INDICATION
     Dosage: UNK
     Route: 065
     Dates: end: 201701
  5. COSENTYX [Suspect]
     Active Substance: SECUKINUMAB
     Dosage: 300 MG, QMO
     Route: 058
  6. COSENTYX [Suspect]
     Active Substance: SECUKINUMAB
     Dosage: 150 MG, QMO
     Route: 058
     Dates: start: 201712
  7. COSENTYX [Suspect]
     Active Substance: SECUKINUMAB
     Dosage: 150 MG, QMO
     Route: 058
     Dates: start: 201801, end: 202005
  8. OMEPRAZOLE. [Concomitant]
     Active Substance: OMEPRAZOLE
     Indication: PORTAL HYPERTENSION
     Dosage: UNK
     Route: 065

REACTIONS (24)
  - Ascites [Unknown]
  - Stress [Unknown]
  - Psoriasis [Recovered/Resolved]
  - Psoriatic arthropathy [Not Recovered/Not Resolved]
  - Pruritus [Recovered/Resolved]
  - Varices oesophageal [Not Recovered/Not Resolved]
  - Fatigue [Not Recovered/Not Resolved]
  - Dysphagia [Unknown]
  - Rash [Unknown]
  - Haematemesis [Recovering/Resolving]
  - Hepatitis [Unknown]
  - Emotional distress [Unknown]
  - Liver disorder [Not Recovered/Not Resolved]
  - Fluid retention [Unknown]
  - Vomiting [Unknown]
  - Insomnia [Unknown]
  - Hepatic cirrhosis [Not Recovered/Not Resolved]
  - Weight decreased [Unknown]
  - Pruritus [Not Recovered/Not Resolved]
  - Burning sensation [Recovered/Resolved]
  - Blood pressure abnormal [Unknown]
  - Upper gastrointestinal haemorrhage [Recovered/Resolved]
  - Psoriasis [Not Recovered/Not Resolved]
  - Eating disorder [Unknown]

NARRATIVE: CASE EVENT DATE: 20170731
